FAERS Safety Report 6041271-8 (Version None)
Quarter: 2009Q1

REPORT INFORMATION
  Report Type: 
  Country: None (occurrence: None)
  Receive Date: 20090116
  Receipt Date: 20080925
  Transmission Date: 20090719
  Serious: No
  Sender: FDA-Public Use
  Company Number: US-BRISTOL-MYERS SQUIBB COMPANY-14347835

PATIENT
  Age: 12 Year
  Sex: Male

DRUGS (1)
  1. ABILIFY [Suspect]
     Dosage: 10MG IN THE MORNING, 10MG AT NOON AND 20MG IN THE EVENING. DECREASED TO 20MG IN THE EVENING.

REACTIONS (1)
  - SEDATION [None]
